FAERS Safety Report 5744475-4 (Version None)
Quarter: 2008Q2

REPORT INFORMATION
  Report Type: 
  Country: None (occurrence: None)
  Receive Date: 20080520
  Receipt Date: 20080516
  Transmission Date: 20081010
  Serious: Yes (Death, Hospitalization)
  Sender: FDA-Public Use
  Company Number: GB-ASTRAZENECA-2008GB00691

PATIENT
  Age: 85 Year
  Sex: Male
  Weight: 76.4 kg

DRUGS (6)
  1. SEROQUEL [Suspect]
     Indication: MOOD SWINGS
     Route: 048
     Dates: start: 20080320, end: 20080408
  2. LODINE SR [Concomitant]
     Indication: ARTHRITIS
     Route: 048
  3. ASPIRIN [Concomitant]
     Indication: HYPERTENSION
     Dosage: LONG TERM
     Route: 048
  4. TRITACE [Concomitant]
     Indication: HYPERTENSION
     Dosage: LONG TERM
     Route: 048
  5. TRASICOR [Concomitant]
     Dosage: LONG TERM
     Route: 048
  6. PREDNISOLONE [Concomitant]
     Indication: ARTHRITIS
     Dosage: LONG TERM
     Route: 048

REACTIONS (10)
  - DEHYDRATION [None]
  - DEPRESSED LEVEL OF CONSCIOUSNESS [None]
  - DIZZINESS [None]
  - HEART RATE INCREASED [None]
  - HYPOTENSION [None]
  - ILL-DEFINED DISORDER [None]
  - INCONTINENCE [None]
  - SEPSIS [None]
  - SOMNOLENCE [None]
  - UNRESPONSIVE TO STIMULI [None]
